FAERS Safety Report 9657454 (Version 1)
Quarter: 2013Q4

REPORT INFORMATION
  Report Type: Spontaneous
  Country: JP (occurrence: JP)
  Receive Date: 20131030
  Receipt Date: 20131030
  Transmission Date: 20140711
  Serious: Yes (Other)
  Sender: FDA-Public Use
  Company Number: JP-PFIZER INC-2013305504

PATIENT
  Sex: 0

DRUGS (1)
  1. SUNITINIB MALATE [Suspect]

REACTIONS (1)
  - Post procedural haemorrhage [Unknown]
